FAERS Safety Report 12763051 (Version 1)
Quarter: 2016Q3

REPORT INFORMATION
  Report Type: Spontaneous
  Country: US (occurrence: US)
  Receive Date: 20160916
  Receipt Date: 20160916
  Transmission Date: 20161109
  Serious: No
  Sender: FDA-Public Use
  Company Number: None

PATIENT
  Sex: Female

DRUGS (1)
  1. MAGNESIUM SULFATE. [Suspect]
     Active Substance: MAGNESIUM SULFATE
     Indication: DEHYDRATION
     Dosage: M.W.,F OVER 6 HOURS
     Route: 042
     Dates: start: 20160715, end: 20160720

REACTIONS (4)
  - Flushing [None]
  - Therapy change [None]
  - Limb discomfort [None]
  - Blood magnesium increased [None]

NARRATIVE: CASE EVENT DATE: 20160715
